FAERS Safety Report 24767194 (Version 2)
Quarter: 2025Q2

REPORT INFORMATION
  Report Type: Spontaneous
  Country: US (occurrence: US)
  Receive Date: 20241223
  Receipt Date: 20250409
  Transmission Date: 20250716
  Serious: Yes (Other)
  Sender: SANOFI AVENTIS
  Company Number: US-SA-2024SA376835

PATIENT
  Age: 7 Year
  Sex: Male

DRUGS (8)
  1. DUPIXENT [Suspect]
     Active Substance: DUPILUMAB
     Indication: Eczema
     Route: 058
     Dates: start: 20240614, end: 20240614
  2. DUPIXENT [Suspect]
     Active Substance: DUPILUMAB
     Dosage: 200 MG QOW
     Route: 058
     Dates: start: 202406
  3. DUPIXENT [Suspect]
     Active Substance: DUPILUMAB
     Indication: Eczema
     Route: 058
     Dates: start: 20240614, end: 20240614
  4. DUPIXENT [Suspect]
     Active Substance: DUPILUMAB
     Dosage: 1 DF, QOW
     Route: 058
     Dates: start: 202406
  5. MOMETASONE [Concomitant]
     Active Substance: MOMETASONE
  6. PIMECROLIMUS [Concomitant]
     Active Substance: PIMECROLIMUS
  7. CLOBETASOL [Concomitant]
     Active Substance: CLOBETASOL
  8. TRIAMCINOLONE [Concomitant]
     Active Substance: TRIAMCINOLONE

REACTIONS (4)
  - Atypical pneumonia [Recovered/Resolved]
  - White blood cell count increased [Recovered/Resolved]
  - Hepatic enzyme increased [Unknown]
  - Inappropriate schedule of product administration [Unknown]

NARRATIVE: CASE EVENT DATE: 20240101
